FAERS Safety Report 10415555 (Version 1)
Quarter: 2014Q2

REPORT INFORMATION
  Report Type: Spontaneous
  Country: US (occurrence: None)
  Receive Date: 20140604
  Receipt Date: 20140604
  Transmission Date: 20141212
  Serious: No
  Sender: FDA-Public Use
  Company Number: 163-POMAL-14021495

PATIENT
  Age: 65 Year
  Sex: Female
  Weight: 68 kg

DRUGS (11)
  1. POMALYST (POMALIDOMIDE) (2 MILLIGRAM, CAPSULES) [Suspect]
     Indication: PLASMA CELL MYELOMA
     Route: 048
     Dates: start: 20130822, end: 2013
  2. PREDNISONE [Concomitant]
  3. DEXAMETHASONE [Concomitant]
  4. CELEXA (CITALOPRAM HYDROBROMIDE) [Concomitant]
  5. FUROSEMIDE [Concomitant]
  6. KLOR-CON (POTASSIUM CHLORIDE) [Concomitant]
  7. HYDROCORTISONE [Concomitant]
  8. MORPHINE SULFATE [Concomitant]
  9. XARELTO (RIVAROXABAN) [Concomitant]
  10. OXYCODONE [Concomitant]
  11. DRONABINOL [Concomitant]

REACTIONS (3)
  - Lung infection [None]
  - Adverse drug reaction [None]
  - Fatigue [None]
